FAERS Safety Report 5558924-8 (Version None)
Quarter: 2007Q4

REPORT INFORMATION
  Report Type: 
  Country: None (occurrence: None)
  Receive Date: 20071214
  Receipt Date: 20070910
  Transmission Date: 20080405
  Serious: No
  Sender: FDA-Public Use
  Company Number: US-ABBOTT-07P-163-0416962-00

PATIENT
  Sex: Male
  Weight: 105 kg

DRUGS (4)
  1. HUMIRA [Suspect]
     Indication: PSORIASIS
     Route: 058
     Dates: start: 20060801, end: 20070101
  2. HUMIRA [Suspect]
     Indication: PSORIATIC ARTHROPATHY
     Dosage: PRE-FILLED SYRINGE
     Route: 058
     Dates: start: 20040101, end: 20060801
  3. HUMIRA [Suspect]
     Route: 058
     Dates: start: 20070401, end: 20070801
  4. HUMIRA [Suspect]
     Dates: start: 20070901

REACTIONS (2)
  - EAR INFECTION [None]
  - UPPER RESPIRATORY TRACT INFECTION [None]
